FAERS Safety Report 12093693 (Version 1)
Quarter: 2016Q1

REPORT INFORMATION
  Report Type: Spontaneous
  Country: GB (occurrence: GB)
  Receive Date: 20160219
  Receipt Date: 20160219
  Transmission Date: 20160526
  Serious: Yes (Disabling)
  Sender: FDA-Public Use
  Company Number: GB-TEVA-634589ACC

PATIENT
  Age: 76 Year
  Sex: Male
  Weight: 78 kg

DRUGS (1)
  1. SIMVASTATIN. [Suspect]
     Active Substance: SIMVASTATIN
     Indication: BLOOD CHOLESTEROL INCREASED
     Dosage: 40 MILLIGRAM DAILY; AT NIGHT
     Route: 048

REACTIONS (1)
  - Nocturia [Not Recovered/Not Resolved]
